FAERS Safety Report 24154530 (Version 2)
Quarter: 2024Q4

REPORT INFORMATION
  Report Type: Report from Study
  Country: US (occurrence: US)
  Receive Date: 20240731
  Receipt Date: 20241007
  Transmission Date: 20250115
  Serious: No
  Sender: ACADIA PHARMACEUTICALS
  Company Number: US-ACADIA PHARMACEUTICALS INC.-ACA-2024-PIM-003393

PATIENT
  Age: 81 Year
  Sex: Male

DRUGS (20)
  1. NUPLAZID [Suspect]
     Active Substance: PIMAVANSERIN TARTRATE
     Indication: Parkinson^s disease
     Dosage: 34 MILLIGRAM, QD
     Route: 048
     Dates: start: 20231128
  2. NUPLAZID [Suspect]
     Active Substance: PIMAVANSERIN TARTRATE
     Indication: Hallucination
  3. NUPLAZID [Suspect]
     Active Substance: PIMAVANSERIN TARTRATE
     Indication: Parkinson^s disease psychosis
  4. ALLOPURINOL [Concomitant]
     Active Substance: ALLOPURINOL
  5. STOOL SOFTENER (DOCUSATE) [Concomitant]
     Active Substance: DOCUSATE
  6. VITAMIN D3 [Concomitant]
     Active Substance: CHOLECALCIFEROL
  7. LISINOPRIL [Concomitant]
     Active Substance: LISINOPRIL
  8. HERBALS\WITHANIA SOMNIFERA ROOT [Concomitant]
     Active Substance: HERBALS\WITHANIA SOMNIFERA ROOT
  9. CASTOR OIL [Concomitant]
     Active Substance: CASTOR OIL
  10. VITAMIN C [Concomitant]
     Active Substance: ASCORBIC ACID
  11. VITAMINS NOS [Concomitant]
     Active Substance: VITAMINS
  12. MAGNESIUM [Concomitant]
     Active Substance: MAGNESIUM
  13. AIRBORNE ELDERBERRY [Concomitant]
     Dosage: GUMMIES
  14. ASPIRIN [Concomitant]
     Active Substance: ASPIRIN
  15. ROSUVASTATIN [Concomitant]
     Active Substance: ROSUVASTATIN
  16. ROPINIROLE [Concomitant]
     Active Substance: ROPINIROLE
     Dosage: 8 MILLIGRAM, ER
  17. ROPINIROLE [Concomitant]
     Active Substance: ROPINIROLE
     Dosage: 10 MILLIGRAM, ER
  18. PROBIOTICS NOS [Concomitant]
     Active Substance: PROBIOTICS NOS
  19. DOCUSATE [Concomitant]
     Active Substance: DOCUSATE
  20. SINEMET [Concomitant]
     Active Substance: CARBIDOPA\LEVODOPA

REACTIONS (8)
  - Dyskinesia [Unknown]
  - Insomnia [Unknown]
  - Middle insomnia [Not Recovered/Not Resolved]
  - Delusion [Not Recovered/Not Resolved]
  - Fear [Not Recovered/Not Resolved]
  - Abnormal behaviour [Not Recovered/Not Resolved]
  - Patient elopement [Not Recovered/Not Resolved]
  - Hallucination [Not Recovered/Not Resolved]

NARRATIVE: CASE EVENT DATE: 20240709
